FAERS Safety Report 24943581 (Version 1)
Quarter: 2025Q1

REPORT INFORMATION
  Report Type: Spontaneous
  Country: US (occurrence: US)
  Receive Date: 20250207
  Receipt Date: 20250207
  Transmission Date: 20250409
  Serious: No
  Sender: GE HEALTHCARE
  Company Number: US-GE HEALTHCARE-2025CSU000471

PATIENT
  Age: 55 Year
  Sex: Female
  Weight: 102 kg

DRUGS (6)
  1. OMNIPAQUE [Suspect]
     Active Substance: IOHEXOL
     Indication: Computerised tomogram abdomen
     Route: 042
     Dates: start: 20250108, end: 20250108
  2. ATORVASTATIN [Concomitant]
     Active Substance: ATORVASTATIN
  3. LEVOTHYROXINE [Concomitant]
     Active Substance: LEVOTHYROXINE
  4. LOSARTAN [Concomitant]
     Active Substance: LOSARTAN
  5. METFORMIN [Concomitant]
     Active Substance: METFORMIN HYDROCHLORIDE
  6. PYRIDIUM [Concomitant]
     Active Substance: PHENAZOPYRIDINE

REACTIONS (2)
  - Urticaria [Recovered/Resolved]
  - Pruritus [Recovered/Resolved]

NARRATIVE: CASE EVENT DATE: 20250108
